FAERS Safety Report 5085438-4 (Version None)
Quarter: 2006Q3

REPORT INFORMATION
  Report Type: 
  Country: None (occurrence: None)
  Receive Date: 20060822
  Receipt Date: 20060717
  Transmission Date: 20061208
  Serious: Yes (Hospitalization, Other)
  Sender: FDA-Public Use
  Company Number: PHEH2006US09174

PATIENT
  Age: 48 Year
  Sex: Male

DRUGS (7)
  1. ZELNORM [Suspect]
     Indication: IRRITABLE BOWEL SYNDROME
     Dosage: 1/2 A 6 MG TABLET QD
     Route: 048
     Dates: start: 20060123
  2. ZELNORM [Suspect]
     Dosage: 1/2 A 6 MG TABLET BID
     Route: 048
     Dates: start: 20060213, end: 20060410
  3. LISINOPRIL [Concomitant]
  4. TETRACYCLINE [Concomitant]
     Indication: ROSACEA
  5. NEXIUM [Concomitant]
  6. WELLBUTRIN [Concomitant]
  7. RELPAX [Concomitant]
     Indication: MIGRAINE

REACTIONS (10)
  - ABDOMINAL PAIN LOWER [None]
  - ADHESION [None]
  - ENTERITIS [None]
  - NAUSEA [None]
  - OBSTRUCTION [None]
  - OPEN WOUND [None]
  - ORAL INTAKE REDUCED [None]
  - PULMONARY EMBOLISM [None]
  - SURGERY [None]
  - VOMITING [None]
